FAERS Safety Report 21245054 (Version 2)
Quarter: 2022Q3

REPORT INFORMATION
  Report Type: Report from Study
  Country: NL (occurrence: NL)
  Receive Date: 20220823
  Receipt Date: 20220826
  Transmission Date: 20221026
  Serious: Yes (Other)
  Sender: FDA-Public Use
  Company Number: NL-ABBVIE-22K-114-4513092-00

PATIENT
  Sex: Male

DRUGS (10)
  1. CARBIDOPA\LEVODOPA [Suspect]
     Active Substance: CARBIDOPA\LEVODOPA
     Indication: Parkinson^s disease
     Route: 050
     Dates: start: 20170705
  2. CARBIDOPA\LEVODOPA [Suspect]
     Active Substance: CARBIDOPA\LEVODOPA
     Dosage: MD:6.5ML; CD:2.8ML/H; ED:1.0ML;
     Route: 050
  3. CARBIDOPA\LEVODOPA [Suspect]
     Active Substance: CARBIDOPA\LEVODOPA
     Dosage: MD:6.5ML; CD:3.1ML/H; ED:1.0ML;
     Route: 050
  4. CARBIDOPA\LEVODOPA [Suspect]
     Active Substance: CARBIDOPA\LEVODOPA
     Dosage: MD:9.5ML; CD:3.1ML/H; ED:1.0ML;
     Route: 050
  5. CARBIDOPA\LEVODOPA [Suspect]
     Active Substance: CARBIDOPA\LEVODOPA
     Dosage: MD:8,5ML; CD:3,1ML/H; ED:1.0ML;
     Route: 050
  6. MOVICOLON [Concomitant]
     Active Substance: POLYETHYLENE GLYCOL 3350\POTASSIUM CHLORIDE\SODIUM BICARBONATE\SODIUM CHLORIDE
     Indication: Bowel movement irregularity
  7. MICROLAX [Concomitant]
     Indication: Bowel movement irregularity
  8. SYMMETREL [Concomitant]
     Active Substance: AMANTADINE HYDROCHLORIDE
     Indication: Product used for unknown indication
  9. BENSERAZIDE HYDROCHLORIDE\LEVODOPA [Concomitant]
     Active Substance: BENSERAZIDE HYDROCHLORIDE\LEVODOPA
     Indication: Product used for unknown indication
  10. UNSPECIFIED INGREDIENT [Concomitant]
     Active Substance: UNSPECIFIED INGREDIENT
     Indication: Fluid retention
     Dosage: WHEN NEEDED

REACTIONS (6)
  - Myocardial infarction [Recovered/Resolved]
  - COVID-19 [Recovered/Resolved]
  - Dyskinesia [Not Recovered/Not Resolved]
  - Dystonia [Not Recovered/Not Resolved]
  - Tremor [Not Recovered/Not Resolved]
  - On and off phenomenon [Not Recovered/Not Resolved]
